FAERS Safety Report 8096014-3 (Version None)
Quarter: 2012Q1

REPORT INFORMATION
  Report Type: 
  Country: None (occurrence: None)
  Receive Date: 20120129
  Receipt Date: 20111228
  Transmission Date: 20120608
  Serious: No
  Sender: FDA-Public Use
  Company Number: US-ABBOTT-11P-163-0887070-00

PATIENT
  Sex: Male
  Weight: 83.99 kg

DRUGS (2)
  1. HUMIRA [Suspect]
     Route: 058
     Dates: start: 20111201
  2. HUMIRA [Suspect]
     Indication: CROHN'S DISEASE
     Route: 058
     Dates: start: 20050101, end: 20111201

REACTIONS (6)
  - STOMATITIS [None]
  - THROAT LESION [None]
  - GASTROOESOPHAGEAL REFLUX DISEASE [None]
  - EAR DISCOMFORT [None]
  - BONE PAIN [None]
  - DRUG INEFFECTIVE [None]
